FAERS Safety Report 6055641-5 (Version None)
Quarter: 2009Q1

REPORT INFORMATION
  Report Type: 
  Country: None (occurrence: None)
  Receive Date: 20090123
  Receipt Date: 20090116
  Transmission Date: 20090719
  Serious: Yes (Hospitalization)
  Sender: FDA-Public Use
  Company Number: 09-000096

PATIENT
  Age: 32 Year
  Sex: Female
  Weight: 87.1 kg

DRUGS (3)
  1. FEMCON FE [Suspect]
     Dosage: 0.4MG/35MCG, QD, ORAL
     Route: 048
     Dates: start: 20080101, end: 20080214
  2. ORTHO EVRA [Suspect]
     Indication: MENOMETRORRHAGIA
     Dates: start: 20080101, end: 20080214
  3. NORMENSAL (ETHINYLESTRADIOL, NORETHISTERONE) [Suspect]
     Indication: DRUG USE FOR UNKNOWN INDICATION

REACTIONS (2)
  - OFF LABEL USE [None]
  - PORTAL VEIN THROMBOSIS [None]
